FAERS Safety Report 5585952-9 (Version None)
Quarter: 2007Q4

REPORT INFORMATION
  Report Type: 
  Country: None (occurrence: None)
  Receive Date: 20071205
  Receipt Date: 20061213
  Transmission Date: 20080405
  Serious: Yes (Other)
  Sender: FDA-Public Use
  Company Number: HQWYE388318DEC06

PATIENT
  Sex: Male

DRUGS (8)
  1. EFFEXOR XR [Suspect]
     Indication: DEPRESSION
     Dosage: 225 MG 1X PER 1 DAY, ORAL ; 300 MG 1X PER 1 DAY, ORAL
     Route: 048
     Dates: start: 20061120, end: 20061201
  2. EFFEXOR XR [Suspect]
     Indication: DEPRESSION
     Dosage: 225 MG 1X PER 1 DAY, ORAL ; 300 MG 1X PER 1 DAY, ORAL
     Route: 048
     Dates: start: 20061201
  3. LAMICTAL [Concomitant]
  4. LIPITOR [Concomitant]
  5. COENZYME Q10 (COENZYME Q10) [Concomitant]
  6. VITAMIN E [Concomitant]
  7. TRAZODONE HCL [Concomitant]
  8. CARDIZEM CD [Concomitant]

REACTIONS (1)
  - HYPERTENSION [None]
